FAERS Safety Report 6047233-9 (Version None)
Quarter: 2009Q1

REPORT INFORMATION
  Report Type: 
  Country: None (occurrence: None)
  Receive Date: 20090121
  Receipt Date: 20080529
  Transmission Date: 20090719
  Serious: No
  Sender: FDA-Public Use
  Company Number: A-NJ2008-20747

PATIENT
  Age: 87 Year
  Sex: Female

DRUGS (4)
  1. TRACLEER [Suspect]
     Indication: PULMONARY HYPERTENSION
     Dosage: 62.5 MG, BID, ORAL : 62.5 MG, QD, ORAL
     Route: 048
     Dates: start: 20080129
  2. TRACLEER [Suspect]
     Indication: PULMONARY HYPERTENSION
     Dosage: 62.5 MG, BID, ORAL : 62.5 MG, QD, ORAL
     Route: 048
     Dates: start: 20080301
  3. LISINOPRIL (LISINOPRIL DIHYDRATE ) [Concomitant]
  4. GLYBURIDE [Concomitant]

REACTIONS (3)
  - ABDOMINAL DISCOMFORT [None]
  - ASTHENIA [None]
  - NAUSEA [None]
